FAERS Safety Report 15068852 (Version 1)
Quarter: 2018Q2

REPORT INFORMATION
  Report Type: Spontaneous
  Country: AU (occurrence: AU)
  Receive Date: 20180626
  Receipt Date: 20180626
  Transmission Date: 20180711
  Serious: Yes (Other)
  Sender: FDA-Public Use
  Company Number: AU-GILEAD-2018-0346557

PATIENT
  Age: 46 Year
  Sex: Male

DRUGS (2)
  1. TRUVADA [Suspect]
     Active Substance: EMTRICITABINE\TENOFOVIR DISOPROXIL FUMARATE
     Indication: HIV INFECTION
     Dosage: 1 DF, QD
     Route: 048
     Dates: start: 201007, end: 2014
  2. AURORIX [Concomitant]
     Active Substance: MOCLOBEMIDE

REACTIONS (5)
  - Extrasystoles [Recovered/Resolved]
  - Gait disturbance [Recovered/Resolved]
  - Intracranial aneurysm [Recovered/Resolved]
  - Blood pressure increased [Recovered/Resolved]
  - Simple partial seizures [Recovered/Resolved]

NARRATIVE: CASE EVENT DATE: 201209
